FAERS Safety Report 14068391 (Version 2)
Quarter: 2017Q4

REPORT INFORMATION
  Report Type: Report from Study
  Country: US (occurrence: US)
  Receive Date: 20171010
  Receipt Date: 20171023
  Transmission Date: 20180321
  Serious: Yes (Hospitalization)
  Sender: FDA-Public Use
  Company Number: US-GILEAD-2017-0297136

PATIENT
  Age: 3 Year
  Sex: Female
  Weight: 12.7 kg

DRUGS (26)
  1. AMBRISENTAN [Suspect]
     Active Substance: AMBRISENTAN
     Indication: PULMONARY HYPERTENSION
     Dosage: 2.5 MG, QD
     Route: 048
     Dates: start: 20160115
  2. DIURIL                             /00011801/ [Concomitant]
  3. AMBRISENTAN [Suspect]
     Active Substance: AMBRISENTAN
     Indication: TRISOMY 21
  4. ADCIRCA [Concomitant]
     Active Substance: TADALAFIL
  5. LACTOSE FAST ACTING RELIEF [Concomitant]
  6. SENNA SMOOTH [Concomitant]
  7. SPIRONOLACTONE. [Concomitant]
     Active Substance: SPIRONOLACTONE
  8. ALBUTEROL HFA [Concomitant]
     Active Substance: ALBUTEROL SULFATE
  9. PROBIOTIC                          /06395501/ [Concomitant]
     Active Substance: BIFIDOBACTERIUM ANIMALIS LACTIS
  10. ZYRTEC [Concomitant]
     Active Substance: CETIRIZINE HYDROCHLORIDE
  11. NASONEX [Concomitant]
     Active Substance: MOMETASONE FUROATE
  12. SINGULAIR [Concomitant]
     Active Substance: MONTELUKAST SODIUM
  13. AMBRISENTAN [Suspect]
     Active Substance: AMBRISENTAN
     Indication: SLEEP APNOEA SYNDROME
  14. AMBRISENTAN [Suspect]
     Active Substance: AMBRISENTAN
     Indication: CHOANAL ATRESIA
  15. MULTI VIT [Concomitant]
  16. MIRALAX [Concomitant]
     Active Substance: POLYETHYLENE GLYCOL 3350
  17. PROBIOTIC COMPLEX [Concomitant]
  18. SENOKOT [Concomitant]
     Active Substance: SENNOSIDES
  19. ALDACTONE [Concomitant]
     Active Substance: SPIRONOLACTONE
  20. TADALAFIL [Concomitant]
     Active Substance: TADALAFIL
  21. AMBRISENTAN [Suspect]
     Active Substance: AMBRISENTAN
     Indication: ANAEMIA OF CHRONIC DISEASE
  22. LASIX [Concomitant]
     Active Substance: FUROSEMIDE
  23. PREVACID [Concomitant]
     Active Substance: LANSOPRAZOLE
  24. SIMETHICONE (DIMETHICONE) [Concomitant]
     Active Substance: DIMETHICONE
  25. MOTRIN [Concomitant]
     Active Substance: IBUPROFEN
  26. TYLENOL [Concomitant]
     Active Substance: ACETAMINOPHEN

REACTIONS (3)
  - Post procedural complication [Recovered/Resolved]
  - Tonsillectomy [Recovered/Resolved]
  - Off label use [Not Recovered/Not Resolved]

NARRATIVE: CASE EVENT DATE: 20160115
